FAERS Safety Report 14369343 (Version 1)
Quarter: 2018Q1

REPORT INFORMATION
  Report Type: Spontaneous
  Country: NL (occurrence: NL)
  Receive Date: 20180109
  Receipt Date: 20180109
  Transmission Date: 20180509
  Serious: Yes (Other)
  Sender: FDA-Public Use
  Company Number: NL-BAXTER-2017BAX046183

PATIENT
  Age: 25 Year
  Sex: Male
  Weight: 96 kg

DRUGS (13)
  1. PROCARBAZINE HYDROCHLORIDE [Suspect]
     Active Substance: PROCARBAZINE HYDROCHLORIDE
     Indication: HODGKIN^S DISEASE
     Dosage: 6 CYCLES OF BEACOPP
     Route: 065
     Dates: start: 201412, end: 201505
  2. DEXAMETHASONE. [Suspect]
     Active Substance: DEXAMETHASONE
     Indication: HODGKIN^S DISEASE
     Dosage: DHAP CHEMOTHERAPY
     Route: 065
     Dates: start: 201508, end: 201509
  3. CYTARABINE. [Suspect]
     Active Substance: CYTARABINE
     Indication: HODGKIN^S DISEASE
     Dosage: DHAP CHEMOTHERAPY
     Route: 065
     Dates: start: 201508, end: 201509
  4. HOLOXAN, POEDER VOOR OPLOSSING VOOR INFUSIE [Suspect]
     Active Substance: IFOSFAMIDE
     Indication: HODGKIN^S DISEASE
     Dosage: UNK, VIM CHEMOTHERAPY
     Route: 065
     Dates: start: 201509, end: 201510
  5. PREDNISONE. [Suspect]
     Active Substance: PREDNISONE
     Indication: HODGKIN^S DISEASE
     Dosage: 6 CYCLES OF BEACOPP
     Route: 065
     Dates: start: 201412, end: 201505
  6. CISPLATINE [Suspect]
     Active Substance: CISPLATIN
     Indication: HODGKIN^S DISEASE
     Dosage: DHAP CHEMOTHERAPY
     Route: 065
     Dates: start: 201508, end: 201509
  7. ENDOXAN I.V., POEDER VOOR OPLOSSING VOOR INJECTIE 200, 500, 750, 1000, [Suspect]
     Active Substance: CYCLOPHOSPHAMIDE
     Indication: HODGKIN^S DISEASE
     Dosage: 6 CYCLES OF BEACOPP
     Route: 065
     Dates: start: 201412, end: 201505
  8. ETOPOSIDE. [Suspect]
     Active Substance: ETOPOSIDE
     Indication: HODGKIN^S DISEASE
     Dosage: 6 CYCLES OF BEACOPP
     Route: 065
     Dates: start: 201412, end: 201505
  9. ETOPOSIDE. [Suspect]
     Active Substance: ETOPOSIDE
     Dosage: UNK, VIM CHEMOTHERAPY
     Route: 065
     Dates: start: 201509, end: 201510
  10. MTX [Suspect]
     Active Substance: METHOTREXATE SODIUM
     Indication: HODGKIN^S DISEASE
     Dosage: UNK, VIM CHEMOTHERAPY
     Route: 065
     Dates: start: 201509, end: 201510
  11. VINCRISTINE SULFATE. [Suspect]
     Active Substance: VINCRISTINE SULFATE
     Indication: HODGKIN^S DISEASE
     Dosage: 6 CYCLES OF BEACOPP
     Route: 065
     Dates: start: 201412, end: 201505
  12. DOXORUBICIN HYDROCHLORIDE. [Suspect]
     Active Substance: DOXORUBICIN HYDROCHLORIDE
     Indication: HODGKIN^S DISEASE
     Dosage: 6 CYCLES OF BEACOPP
     Route: 065
     Dates: start: 201412, end: 201505
  13. BLEOMYCIN [Suspect]
     Active Substance: BLEOMYCIN SULFATE
     Indication: HODGKIN^S DISEASE
     Dosage: 6 CYCLES OF BEACOPP
     Route: 065
     Dates: start: 201412, end: 201505

REACTIONS (1)
  - Drug ineffective [Not Recovered/Not Resolved]
